FAERS Safety Report 8121779-1 (Version None)
Quarter: 2012Q1

REPORT INFORMATION
  Report Type: 
  Country: None (occurrence: None)
  Receive Date: 20120208
  Receipt Date: 20120206
  Transmission Date: 20120608
  Serious: Yes (Other)
  Sender: FDA-Public Use
  Company Number: US-AMGEN-US316196

PATIENT
  Age: 78 Year
  Sex: Female

DRUGS (1)
  1. ROMIPLOSTIM [Suspect]
     Indication: MYELODYSPLASTIC SYNDROME
     Dosage: 5 MG, QWK
     Route: 058
     Dates: start: 20080922, end: 20081007

REACTIONS (1)
  - PULMONARY ARTERY THROMBOSIS [None]
